FAERS Safety Report 15503739 (Version 1)
Quarter: 2018Q4

REPORT INFORMATION
  Report Type: Spontaneous
  Country: US (occurrence: US)
  Receive Date: 20181009
  Receipt Date: 20181009
  Transmission Date: 20190205
  Serious: Yes (Disabling)
  Sender: FDA-Public Use
  Company Number: None

PATIENT
  Age: 73 Year
  Sex: Female
  Weight: 65.25 kg

DRUGS (6)
  1. SYNTHROID [Concomitant]
     Active Substance: LEVOTHYROXINE SODIUM
  2. VALIUM [Concomitant]
     Active Substance: DIAZEPAM
  3. CLOBETASOL [Concomitant]
     Active Substance: CLOBETASOL
  4. HORMONE REPLACEMENT [Concomitant]
  5. ALOE CAPSULES [Concomitant]
  6. CIPROFLOXACIN. [Suspect]
     Active Substance: CIPROFLOXACIN
     Indication: CYSTITIS
     Route: 048

REACTIONS (11)
  - Mood swings [None]
  - Pruritus [None]
  - Seizure [None]
  - Malaise [None]
  - Tendonitis [None]
  - Pain [None]
  - Back disorder [None]
  - Agitation [None]
  - Sleep disorder [None]
  - Asthenia [None]
  - Neuropathy peripheral [None]

NARRATIVE: CASE EVENT DATE: 20130606
